FAERS Safety Report 6569714-1 (Version None)
Quarter: 2010Q1

REPORT INFORMATION
  Report Type: 
  Country: None (occurrence: None)
  Receive Date: 20100125
  Receipt Date: 20091111
  Transmission Date: 20100710
  Serious: Yes (Other)
  Sender: FDA-Public Use
  Company Number: 2006BI013637

PATIENT
  Age: 58 Year
  Sex: Male
  Weight: 63.5036 kg

DRUGS (6)
  1. TYSABRI [Suspect]
     Indication: MULTIPLE SCLEROSIS
     Dosage: 60 MG;QM;IV
     Route: 042
     Dates: start: 20050101, end: 20060921
  2. ACCUPRIL [Concomitant]
  3. BACLOFEN [Concomitant]
  4. DITROPAN [Concomitant]
  5. INDERAL [Concomitant]
  6. PREV MEDS [Concomitant]

REACTIONS (2)
  - ANAPHYLACTIC REACTION [None]
  - COGNITIVE DISORDER [None]
